FAERS Safety Report 5648408-0 (Version None)
Quarter: 2008Q1

REPORT INFORMATION
  Report Type: 
  Country: None (occurrence: None)
  Receive Date: 20080229
  Receipt Date: 20080225
  Transmission Date: 20080703
  Serious: Yes (Hospitalization)
  Sender: FDA-Public Use
  Company Number: 6041072

PATIENT
  Age: 59 Year
  Sex: Male

DRUGS (14)
  1. BISOPROLOL FUMARATE [Suspect]
     Indication: DRUG USE FOR UNKNOWN INDICATION
     Dosage: 1.25 MG (1.25 MG, 1D) ORAL
     Route: 048
  2. GLUCOPHAGE [Suspect]
     Dosage: 850 MG (850 MG, 1 D) ORAL
     Route: 048
  3. SKENAN LP (30 MG, CAPSULE) (MORPHINE SULFATE) [Suspect]
     Indication: SCIATICA
     Dosage: 60 MG (60 MG, 1 D) ORAL
     Route: 048
     Dates: start: 20070727, end: 20070801
  4. MIOREL (4 MG, CAPSULE) (THIOCOLCHICOSIDE) [Suspect]
     Indication: DRUG USE FOR UNKNOWN INDICATION
     Dosage: 12 MG (12 MG, 1) ORAL
     Route: 048
     Dates: start: 20070730, end: 20070801
  5. KARDEGIC (POWDER FOR ORAL SOLUTION) (ACETYLSALICYLATE LYSINE) [Suspect]
     Indication: DRUG USE FOR UNKNOWN INDICATION
     Dosage: 75 MG (75 MG, 1 D) ORAL
     Route: 048
  6. PLAVIX [Suspect]
     Indication: DRUG USE FOR UNKNOWN INDICATION
     Dosage: 75 MG (75 MG, 1 D) ORAL
     Route: 048
  7. TRIATEC(TABLET) (RAMIPRIL) [Suspect]
     Indication: DRUG USE FOR UNKNOWN INDICATION
     Dosage: 10 MG (10 MG, 1 D) ORAL
     Route: 048
  8. FUROSEMIDE [Suspect]
     Indication: DRUG USE FOR UNKNOWN INDICATION
     Dosage: 40 MG (40 MG, 1 D) ORAL
     Route: 048
  9. ATORVASTATIN CALCIUM [Suspect]
     Indication: DRUG USE FOR UNKNOWN INDICATION
     Dosage: 10 MG (10 MG, 1 D) ORAL
     Route: 048
  10. SPIRIVA [Suspect]
     Indication: DRUG USE FOR UNKNOWN INDICATION
     Dosage: 18 MCG (18 MCG, 1 D) RESPIRATORY (INHALATION)
     Route: 055
  11. SYMBICORT [Suspect]
     Indication: DRUG USE FOR UNKNOWN INDICATION
     Dosage: 400 / 12 UG (2 DOSAGE FORMS, 1 D) RESPIRATORY (INHALATION)
     Route: 055
  12. NORSET (15 MG, TABLET) (MIRTAZAPINE) [Suspect]
     Indication: DRUG USE FOR UNKNOWN INDICATION
     Dosage: 30 MG (30 MG, 1 D) ORAL
     Route: 048
  13. AMARYL [Suspect]
     Indication: DRUG USE FOR UNKNOWN INDICATION
     Dosage: 2 MG (2 MG, 1 D) ORAL
     Route: 048
  14. LEVEMIR FLEXPEN(SOLUTION FOR INJECTION) (INSULIN DETEMIR) [Suspect]
     Indication: DRUG USE FOR UNKNOWN INDICATION
     Dosage: 22 IU (22 IU, D D) SUBCUTANEOUS
     Route: 058

REACTIONS (1)
  - URINARY RETENTION [None]
